FAERS Safety Report 8017643-9 (Version None)
Quarter: 2012Q1

REPORT INFORMATION
  Report Type: 
  Country: None (occurrence: None)
  Receive Date: 20120103
  Receipt Date: 20111220
  Transmission Date: 20120608
  Serious: Yes (Other)
  Sender: FDA-Public Use
  Company Number: CA-JNJFOC-20111211267

PATIENT
  Sex: Male
  Weight: 80 kg

DRUGS (22)
  1. REMICADE [Suspect]
     Route: 042
     Dates: start: 20111209
  2. PERINDOPRIL ERBUMINE [Concomitant]
     Route: 065
  3. DIAMICRON [Concomitant]
     Route: 065
  4. SULFASALAZINE [Concomitant]
     Route: 065
  5. QUETIAPINE [Concomitant]
     Route: 065
  6. ADVAIR DISKUS 100/50 [Concomitant]
     Route: 065
  7. CLONAZEPAM [Concomitant]
     Route: 065
  8. MARINOL [Concomitant]
     Route: 065
  9. LEVOTHYROXINE SODIUM [Concomitant]
     Route: 065
  10. MIRTAZAPINE [Concomitant]
     Route: 065
  11. ALLOPURINOL [Concomitant]
     Route: 065
  12. OXAZEPAM [Concomitant]
     Route: 065
  13. LIPITOR [Concomitant]
     Route: 065
  14. TAMSULOSIN HCL [Concomitant]
     Route: 065
  15. GABAPENTIN [Concomitant]
     Route: 065
  16. REMICADE [Suspect]
     Indication: ANKYLOSING SPONDYLITIS
     Route: 042
  17. METFORMIN HCL [Concomitant]
     Route: 065
  18. RABEPRAZOLE SODIUM [Concomitant]
     Route: 065
  19. ZOPICLONE [Concomitant]
     Route: 065
  20. ATIVAN [Concomitant]
     Route: 065
  21. ABACAVIR SULFATE AND LAMIVUDINE [Concomitant]
     Route: 065
  22. RALTEGRAVIR [Concomitant]
     Route: 065

REACTIONS (2)
  - NEPHROLITHIASIS [None]
  - HIV INFECTION [None]
